FAERS Safety Report 12090081 (Version 1)
Quarter: 2016Q1

REPORT INFORMATION
  Report Type: Report from Study
  Country: DE (occurrence: DE)
  Receive Date: 20160218
  Receipt Date: 20160218
  Transmission Date: 20160526
  Serious: Yes (Life-Threatening, Hospitalization)
  Sender: FDA-Public Use
  Company Number: DE-B.I. PHARMACEUTICALS,INC./RIDGEFIELD-2015-BI-33402DE

PATIENT
  Age: 80 Year
  Sex: Female
  Weight: 88 kg

DRUGS (12)
  1. COLESTYRAMIN HEXAL [Concomitant]
     Indication: PRODUCT USED FOR UNKNOWN INDICATION
     Dosage: 30 MG
     Route: 048
     Dates: start: 20150917, end: 20151111
  2. PRADAXA [Suspect]
     Active Substance: DABIGATRAN ETEXILATE MESYLATE
     Indication: ATRIAL FIBRILLATION
  3. PANTOPRAZOL HEXAL [Concomitant]
     Indication: PRODUCT USED FOR UNKNOWN INDICATION
     Dosage: 40 MG
     Route: 050
     Dates: start: 20150513, end: 20150531
  4. L-THYROXIN HENNING [Concomitant]
     Dosage: 25 MG
     Route: 048
     Dates: start: 20150722, end: 20151119
  5. TORASEMID HEXAL [Concomitant]
     Indication: PRODUCT USED FOR UNKNOWN INDICATION
     Dosage: 10 MG
     Route: 048
     Dates: start: 20150513, end: 20151119
  6. PRADAXA [Suspect]
     Active Substance: DABIGATRAN ETEXILATE MESYLATE
     Indication: CEREBROVASCULAR ACCIDENT PROPHYLAXIS
     Dosage: 220 MG
     Route: 048
     Dates: start: 20150511
  7. BISOPROLOL HEXAL [Concomitant]
     Indication: PRODUCT USED FOR UNKNOWN INDICATION
     Dosage: 7.5 MG
     Route: 050
     Dates: start: 20150417, end: 20150531
  8. L-THYROXIN HENNING [Concomitant]
     Indication: PRODUCT USED FOR UNKNOWN INDICATION
     Dosage: 25 MG
     Route: 050
     Dates: end: 20150531
  9. MIRTAZAPIN HEXAL [Concomitant]
     Active Substance: MIRTAZAPINE
     Indication: PRODUCT USED FOR UNKNOWN INDICATION
     Dosage: 15 MG
     Route: 048
     Dates: start: 20151116, end: 20151119
  10. MOLSIDOMIN HEUMANN [Concomitant]
     Indication: PRODUCT USED FOR UNKNOWN INDICATION
     Dosage: 8 MG
     Route: 048
     Dates: start: 20150513, end: 20151119
  11. PANTOPRAZOL HEXAL [Concomitant]
     Dosage: 40 MG
     Route: 048
     Dates: start: 20150917, end: 20151119
  12. BISOPROLOL HEXAL [Concomitant]
     Dosage: 5 MG
     Route: 048
     Dates: start: 20150629, end: 20151119

REACTIONS (6)
  - Gastrointestinal pain [Recovered/Resolved]
  - Duodenal obstruction [Recovered/Resolved]
  - Gastrointestinal pain [Recovered/Resolved]
  - Large intestinal haemorrhage [Recovered/Resolved]
  - Gastrointestinal stromal tumour [Recovered/Resolved]
  - Vertigo [Recovered/Resolved]

NARRATIVE: CASE EVENT DATE: 20150531
